FAERS Safety Report 25900041 (Version 1)
Quarter: 2025Q4

REPORT INFORMATION
  Report Type: Spontaneous
  Country: EU (occurrence: EU)
  Receive Date: 20251009
  Receipt Date: 20251009
  Transmission Date: 20260118
  Serious: Yes (Hospitalization)
  Sender: SANOFI AVENTIS
  Company Number: None

PATIENT
  Age: 48 Year
  Sex: Male
  Weight: 80 kg

DRUGS (3)
  1. KARDEGIC [Interacting]
     Active Substance: ASPIRIN DL-LYSINE
     Indication: Aortic valve replacement
     Dosage: 75 MG, QD
     Route: 048
     Dates: end: 20250902
  2. LOVENOX [Interacting]
     Active Substance: ENOXAPARIN SODIUM
     Indication: Aortic valve replacement
     Dosage: 2 DF, QD
     Route: 058
  3. MINISINTROM [Suspect]
     Active Substance: ACENOCOUMAROL
     Indication: Aortic valve replacement
     Dosage: 4 MG, QD(2 OR 3 MG A DAY DEPENDING ON INR)
     Route: 048
     Dates: start: 20250827, end: 20250902

REACTIONS (3)
  - International normalised ratio increased [Recovered/Resolved]
  - Drug interaction [Recovered/Resolved]
  - Haemorrhage [Recovering/Resolving]

NARRATIVE: CASE EVENT DATE: 20250826
